FAERS Safety Report 5913744-7 (Version None)
Quarter: 2008Q4

REPORT INFORMATION
  Report Type: 
  Country: None (occurrence: None)
  Receive Date: 20081009
  Receipt Date: 20080929
  Transmission Date: 20090506
  Serious: Yes (Hospitalization, Other)
  Sender: FDA-Public Use
  Company Number: US-ABBOTT-08P-163-0478994-00

PATIENT
  Sex: Female
  Weight: 63.56 kg

DRUGS (2)
  1. LUPRON DEPOT [Suspect]
     Indication: ENDOMETRIOSIS
     Route: 030
     Dates: start: 19920101, end: 19940101
  2. UNSPECIFIED MEDICATIONS [Concomitant]
     Indication: DRUG USE FOR UNKNOWN INDICATION

REACTIONS (16)
  - ABDOMINAL PAIN [None]
  - ALOPECIA [None]
  - AMNESIA [None]
  - ANXIETY [None]
  - DIARRHOEA [None]
  - FIBROMYALGIA [None]
  - HOT FLUSH [None]
  - INSOMNIA [None]
  - NAUSEA [None]
  - OEDEMA PERIPHERAL [None]
  - OSTEOARTHRITIS [None]
  - PANIC ATTACK [None]
  - STILLBIRTH [None]
  - TEETH BRITTLE [None]
  - TOOTH FRACTURE [None]
  - VOMITING [None]
